FAERS Safety Report 4449172-3 (Version None)
Quarter: 2004Q3

REPORT INFORMATION
  Report Type: 
  Country: None (occurrence: None)
  Receive Date: 20040910
  Receipt Date: 20040830
  Transmission Date: 20050211
  Serious: No
  Sender: FDA-Public Use
  Company Number: 04H-066-0272090-00

PATIENT

DRUGS (1)
  1. HEPARIN SODIUM [Suspect]
     Indication: ANTICOAGULANT THERAPY
     Dosage: SEE IMAGE

REACTIONS (3)
  - AMPUTATION [None]
  - HEPARIN-INDUCED THROMBOCYTOPENIA [None]
  - PERIPHERAL OCCLUSIVE DISEASE [None]
